FAERS Safety Report 24116357 (Version 1)
Quarter: 2024Q3

REPORT INFORMATION
  Report Type: Spontaneous
  Country: EG (occurrence: EG)
  Receive Date: 20240722
  Receipt Date: 20240722
  Transmission Date: 20241017
  Serious: Yes (Hospitalization)
  Sender: NOVO NORDISK
  Company Number: EG-NOVOPROD-1254564

PATIENT
  Age: 83 Month
  Sex: Female
  Weight: 18 kg

DRUGS (2)
  1. ACTRAPID [Suspect]
     Active Substance: INSULIN HUMAN
     Indication: Type 1 diabetes mellitus
     Dosage: 5IU ON EMPTY STOMACH,7 IU/LUNCH AND 4 IU/DINNER AND THEY WILL BE CONTINUED.
     Route: 058
     Dates: start: 20231214
  2. LANTUS [Concomitant]
     Active Substance: INSULIN GLARGINE
     Indication: Diabetes mellitus
     Dosage: 8 IU, QD (AT 10 PM EVERYDAY)
     Route: 058
     Dates: start: 20231214

REACTIONS (7)
  - Muscle spasms [Recovered/Resolved]
  - Abdominal pain [Recovered/Resolved]
  - Headache [Recovered/Resolved]
  - Hyperglycaemia [Recovered/Resolved]
  - Urinary tract infection [Unknown]
  - Calculus urinary [Unknown]
  - Off label use [Unknown]
